FAERS Safety Report 18119004 (Version 2)
Quarter: 2020Q3

REPORT INFORMATION
  Report Type: Report from Study
  Country: KR (occurrence: KR)
  Receive Date: 20200806
  Receipt Date: 20200817
  Transmission Date: 20201103
  Serious: Yes (Other)
  Sender: FDA-Public Use
  Company Number: KR-JNJFOC-20200801870

PATIENT

DRUGS (1)
  1. REMICADE [Suspect]
     Active Substance: INFLIXIMAB
     Indication: ANKYLOSING SPONDYLITIS
     Route: 042

REACTIONS (12)
  - Herpes zoster [Unknown]
  - Uveitis [Unknown]
  - Transaminases increased [Unknown]
  - Tuberculosis [Unknown]
  - Acute kidney injury [Unknown]
  - Injection site reaction [Unknown]
  - Infection [Unknown]
  - Psoriasis [Unknown]
  - Rash [Unknown]
  - Treatment noncompliance [Unknown]
  - Gastric ulcer [Unknown]
  - Drug ineffective [Unknown]
